FAERS Safety Report 12552769 (Version 3)
Quarter: 2016Q4

REPORT INFORMATION
  Report Type: Spontaneous
  Country: US (occurrence: US)
  Receive Date: 20160713
  Receipt Date: 20161101
  Transmission Date: 20170207
  Serious: Yes (Other)
  Sender: FDA-Public Use
  Company Number: US-TEVA-657323USA

PATIENT
  Sex: Female

DRUGS (2)
  1. ZECUITY [Suspect]
     Active Substance: SUMATRIPTAN SUCCINATE
     Indication: MIGRAINE
     Route: 062
  2. IMITREX [Concomitant]
     Active Substance: SUMATRIPTAN SUCCINATE

REACTIONS (15)
  - Application site pain [Not Recovered/Not Resolved]
  - Application site discolouration [Recovered/Resolved]
  - Application site warmth [Recovered/Resolved]
  - Application site exfoliation [Recovered/Resolved]
  - Application site rash [Not Recovered/Not Resolved]
  - Application site irritation [Recovered/Resolved]
  - Application site burn [Recovered/Resolved]
  - Incorrect drug administration duration [Unknown]
  - Application site paraesthesia [Recovered/Resolved]
  - Application site pruritus [Recovered/Resolved]
  - Drug effect incomplete [Unknown]
  - Device battery issue [Unknown]
  - Application site erythema [Recovered/Resolved]
  - Product leakage [Unknown]
  - Application site discomfort [Recovered/Resolved]
